FAERS Safety Report 12784623 (Version 1)
Quarter: 2016Q3

REPORT INFORMATION
  Report Type: Report from Study
  Country: DE (occurrence: DE)
  Receive Date: 20160927
  Receipt Date: 20160927
  Transmission Date: 20161109
  Serious: Yes (Other)
  Sender: FDA-Public Use
  Company Number: DE-BAYER-2016-169794

PATIENT
  Age: 45 Year
  Sex: Female

DRUGS (2)
  1. BETAFERON [Concomitant]
     Active Substance: INTERFERON BETA-1B
     Dosage: 2 ML, QOD
  2. BETAFERON [Suspect]
     Active Substance: INTERFERON BETA-1B
     Indication: MULTIPLE SCLEROSIS
     Dosage: 250 ?G, QOD
     Route: 058
     Dates: start: 20120319, end: 20160915

REACTIONS (6)
  - Injection site hypoaesthesia [Recovering/Resolving]
  - Influenza like illness [Recovered/Resolved]
  - Subcutaneous abscess [None]
  - Injection site reaction [Unknown]
  - Wrong technique in product usage process [None]
  - Injection site reaction [Not Recovered/Not Resolved]

NARRATIVE: CASE EVENT DATE: 20160531
